FAERS Safety Report 6166317-8 (Version None)
Quarter: 2009Q2

REPORT INFORMATION
  Report Type: 
  Country: None (occurrence: None)
  Receive Date: 20090422
  Receipt Date: 20090422
  Transmission Date: 20091009
  Serious: Yes (Hospitalization)
  Sender: FDA-Public Use
  Company Number: None

PATIENT
  Age: 2 Year
  Sex: Female
  Weight: 10.8863 kg

DRUGS (2)
  1. CHILDREN'S PEPTO, N/A, PROCTER + GAMBLE [Suspect]
     Indication: ABDOMINAL DISCOMFORT
     Dosage: 1 CHEWABLE TABLET ONCE
     Dates: start: 20090410
  2. CHILDREN'S PEPTO, N/A, PROCTER + GAMBLE [Suspect]
     Indication: DIARRHOEA
     Dosage: 1 CHEWABLE TABLET ONCE
     Dates: start: 20090410

REACTIONS (3)
  - EYELID OEDEMA [None]
  - LIP SWELLING [None]
  - RASH [None]
